FAERS Safety Report 6709215-0 (Version None)
Quarter: 2010Q2

REPORT INFORMATION
  Report Type: 
  Country: None (occurrence: None)
  Receive Date: 20100503
  Receipt Date: 20100503
  Transmission Date: 20101027
  Serious: No
  Sender: FDA-Public Use
  Company Number: None

PATIENT
  Age: 44 Year
  Sex: Female
  Weight: 55.3388 kg

DRUGS (1)
  1. AMOXICILLIN AND CLAVULANATE POTASSIUM [Suspect]
     Dosage: 500MG TID PO
     Route: 048

REACTIONS (5)
  - FASCIITIS [None]
  - PAIN IN EXTREMITY [None]
  - TENDON PAIN [None]
  - TENDONITIS [None]
  - WEIGHT BEARING DIFFICULTY [None]
